FAERS Safety Report 8848938 (Version 1)
Quarter: 2012Q4

REPORT INFORMATION
  Report Type: 
  Country: US (occurrence: US)
  Receive Date: 20121019
  Receipt Date: 20121019
  Transmission Date: 20130627
  Serious: Yes (Hospitalization)
  Sender: FDA-Public Use
  Company Number: US-GENZYME-RENA-1001642

PATIENT
  Sex: Male

DRUGS (1)
  1. RENVELA [Suspect]
     Indication: BLOOD PHOSPHORUS
     Dosage: 7.2 g, qd
     Route: 065

REACTIONS (3)
  - Hospitalisation [Unknown]
  - Vomiting [Unknown]
  - Nausea [Unknown]
